FAERS Safety Report 7957374-4 (Version None)
Quarter: 2011Q4

REPORT INFORMATION
  Report Type: 
  Country: None (occurrence: None)
  Receive Date: 20111205
  Receipt Date: 20111128
  Transmission Date: 20120403
  Serious: Yes (Hospitalization)
  Sender: FDA-Public Use
  Company Number: GXKR2011DE003466

PATIENT

DRUGS (11)
  1. CLOZAPINE [Suspect]
     Dosage: DAILY DOSE: 25 MG MILLIGRAM(S) EVERY DAY
     Route: 048
     Dates: start: 20110730, end: 20110801
  2. HALDOL [Suspect]
     Indication: SCHIZOPHRENIA
     Dosage: DAILY DOSE: 10 MG MILLIGRAM(S) EVERY DAY
     Route: 048
     Dates: start: 20110720, end: 20110722
  3. CLOZAPINE [Suspect]
     Dosage: DAILY DOSE: 75 MG MILLIGRAM(S) EVERY DAY
     Route: 048
  4. HALDOL [Suspect]
     Dosage: DAILY DOSE: 7.5 MG MILLIGRAM(S) EVERY DAY
     Route: 048
     Dates: start: 20110808
  5. CLOZAPINE [Suspect]
     Indication: SCHIZOPHRENIA
     Dosage: 275 MG/DAY
  6. HALDOL [Suspect]
     Dosage: DAILY DOSE: 12.5 MG MILLIGRAM(S) EVERY DAY
     Route: 048
     Dates: start: 20110730, end: 20110801
  7. HALDOL [Suspect]
     Dosage: DAILY DOSE: 10 MG MILLIGRAM(S) EVERY DAY
     Route: 048
     Dates: start: 20110802, end: 20110807
  8. CLOZAPINE [Suspect]
     Dosage: DAILY DOSE: 50 MG MILLIGRAM(S) EVERY DAY
     Route: 048
     Dates: start: 20110802, end: 20110804
  9. CLOZAPINE [Suspect]
     Dosage: DAILY DOSE: 100 MG MILLIGRAM(S) EVERY DAY
     Route: 048
     Dates: start: 20110808, end: 20110812
  10. CLOZAPINE [Suspect]
     Dosage: DAILY DOSE: 125 MG MILLIGRAM(S) EVERY DAY
     Route: 048
     Dates: start: 20110813
  11. HALDOL [Suspect]
     Dosage: DAILY DOSE: 15 MG MILLIGRAM(S) EVERY DAY
     Route: 048
     Dates: start: 20110723, end: 20110729

REACTIONS (4)
  - FOETAL GROWTH RESTRICTION [None]
  - MATERNAL EXPOSURE DURING PREGNANCY [None]
  - UTERINE HAEMORRHAGE [None]
  - ABORTION SPONTANEOUS [None]
